FAERS Safety Report 10202661 (Version 1)
Quarter: 2014Q2

REPORT INFORMATION
  Report Type: Spontaneous
  Country: US (occurrence: US)
  Receive Date: 20140528
  Receipt Date: 20140528
  Transmission Date: 20141212
  Serious: Yes (Hospitalization)
  Sender: FDA-Public Use
  Company Number: US-JNJFOC-20140513821

PATIENT
  Age: 45 Year
  Sex: Male
  Weight: 108.86 kg

DRUGS (2)
  1. INVOKANA [Suspect]
     Indication: TYPE 2 DIABETES MELLITUS
     Route: 048
  2. GLUCOPHAGE [Concomitant]

REACTIONS (3)
  - Dizziness [Unknown]
  - Asthenia [Unknown]
  - Red blood cell count decreased [Unknown]
